FAERS Safety Report 9287753 (Version 5)
Quarter: 2017Q1

REPORT INFORMATION
  Report Type: Spontaneous
  Country: US (occurrence: US)
  Receive Date: 20130514
  Receipt Date: 20170310
  Transmission Date: 20170429
  Serious: No
  Sender: FDA-Public Use
  Company Number: US-PFIZER INC-2013145902

PATIENT
  Age: 47 Year
  Sex: Female

DRUGS (37)
  1. LEVAQUIN [Suspect]
     Active Substance: LEVOFLOXACIN
     Dosage: UNK
  2. ASPIRIN. [Suspect]
     Active Substance: ASPIRIN
     Dosage: UNK
  3. NORFLEX [Suspect]
     Active Substance: ORPHENADRINE CITRATE
     Dosage: UNK
  4. PAXIL [Suspect]
     Active Substance: PAROXETINE HYDROCHLORIDE
     Dosage: UNK
  5. CELEBREX [Suspect]
     Active Substance: CELECOXIB
     Dosage: UNK
  6. ZOLOFT [Suspect]
     Active Substance: SERTRALINE HYDROCHLORIDE
     Dosage: UNK
  7. EXCEDRIN [Suspect]
     Active Substance: ACETAMINOPHEN\ASPIRIN\CAFFEINE
     Dosage: UNK
  8. PLAQUENIL [Suspect]
     Active Substance: HYDROXYCHLOROQUINE SULFATE
     Dosage: UNK
  9. ULTRAM [Suspect]
     Active Substance: TRAMADOL HYDROCHLORIDE
     Dosage: UNK
  10. CYMBALTA [Suspect]
     Active Substance: DULOXETINE HYDROCHLORIDE
     Dosage: UNK
  11. DARVOCET-N 100 [Suspect]
     Active Substance: ACETAMINOPHEN\PROPOXYPHENE NAPSYLATE
     Dosage: UNK
  12. PREDNISONE. [Suspect]
     Active Substance: PREDNISONE
     Dosage: UNK
  13. PHENERGAN [Suspect]
     Active Substance: PROMETHAZINE HYDROCHLORIDE
     Dosage: UNK
  14. VITAMIN D3 [Concomitant]
     Active Substance: CHOLECALCIFEROL
     Dosage: 2 DF, 1X/DAY(AM)
  15. PERCOCET [Concomitant]
     Active Substance: ACETAMINOPHEN\OXYCODONE HYDROCHLORIDE
     Dosage: 10/325 MG, 12 DAILY IN DIVIDED DOSE
  16. SOMA [Concomitant]
     Active Substance: CARISOPRODOL
     Dosage: 350 MG, PRN (1/2-1 TAB 3XDAY)
  17. BIOTIN [Concomitant]
     Active Substance: BIOTIN
     Dosage: 2 DF, 2X/DAY (2 CAPSULES AM, 2 CAPSULES PM)
  18. DARVOCET [Suspect]
     Active Substance: ACETAMINOPHEN\PROPOXYPHENE HYDROCHLORIDE
     Dosage: UNK
  19. MOTRIN [Suspect]
     Active Substance: IBUPROFEN
     Dosage: UNK
  20. EXCEDRIN MIGRAINE [Suspect]
     Active Substance: ACETAMINOPHEN\ASPIRIN\CAFFEINE
     Dosage: UNK
  21. CENTRUM [Concomitant]
     Active Substance: VITAMINS
     Dosage: 1 DF, 1X/DAY (AM)
  22. NEURONTIN [Suspect]
     Active Substance: GABAPENTIN
     Dosage: UNK
  23. KEFLEX [Suspect]
     Active Substance: CEPHALEXIN
     Dosage: UNK
  24. NAPROSYN [Suspect]
     Active Substance: NAPROXEN
     Dosage: UNK
  25. ULTRACET [Suspect]
     Active Substance: ACETAMINOPHEN\TRAMADOL HYDROCHLORIDE
     Dosage: UNK
  26. NAPROXEN. [Suspect]
     Active Substance: NAPROXEN
     Dosage: UNK
  27. CELLCEPT [Concomitant]
     Active Substance: MYCOPHENOLATE MOFETIL\MYCOPHENOLATE MOFETIL HYDROCHLORIDE
     Dosage: 500 MG,( 3 IN AM 2 IN PM)
  28. LYRICA [Concomitant]
     Active Substance: PREGABALIN
     Dosage: 3 DF, 3X/DAY (2 AM 2 NOON 2 PM)
  29. KLONOPIN [Concomitant]
     Active Substance: CLONAZEPAM
     Dosage: 1 MG, 3X/DAY
  30. IBUPROFEN. [Suspect]
     Active Substance: IBUPROFEN
     Dosage: UNK
  31. ALEVE [Suspect]
     Active Substance: NAPROXEN SODIUM
     Dosage: UNK
  32. KEFLEX [Suspect]
     Active Substance: CEPHALEXIN
     Dosage: UNK
  33. RELAFEN [Suspect]
     Active Substance: NABUMETONE
     Dosage: UNK
  34. CLARITIN [Concomitant]
     Active Substance: LORATADINE
     Dosage: 10 MG, 2X/DAY (1 IN AM 1 IN PM)
  35. DILAUDID [Concomitant]
     Active Substance: HYDROMORPHONE HYDROCHLORIDE
     Dosage: 8 MG, 12 DAILY IN DIVIDED DOSE
  36. FLEXERIL [Suspect]
     Active Substance: CYCLOBENZAPRINE HYDROCHLORIDE
     Dosage: UNK
  37. VITAMIN E [Concomitant]
     Active Substance: .ALPHA.-TOCOPHEROL
     Dosage: 2 DF, 1X/DAY (PM)

REACTIONS (1)
  - Drug hypersensitivity [Unknown]
